FAERS Safety Report 5514326-1 (Version None)
Quarter: 2007Q4

REPORT INFORMATION
  Report Type: 
  Country: None (occurrence: None)
  Receive Date: 20071113
  Receipt Date: 20070517
  Transmission Date: 20080405
  Serious: No
  Sender: FDA-Public Use
  Company Number: A0647409A

PATIENT
  Age: 38 Year
  Sex: Female

DRUGS (5)
  1. COREG [Suspect]
     Dosage: 37.5MG VARIABLE DOSE
     Route: 048
  2. LASIX [Concomitant]
  3. ENALAPRIL MALEATE [Concomitant]
  4. DIGOXIN [Concomitant]
  5. ASPIRIN [Concomitant]

REACTIONS (2)
  - FATIGUE [None]
  - SOMNOLENCE [None]
